FAERS Safety Report 5621180-6 (Version None)
Quarter: 2008Q1

REPORT INFORMATION
  Report Type: 
  Country: None (occurrence: None)
  Receive Date: 20080114
  Receipt Date: 20061212
  Transmission Date: 20080703
  Serious: Yes (Hospitalization)
  Sender: FDA-Public Use
  Company Number: A03200607444

PATIENT
  Age: 59 Year
  Sex: Male
  Weight: 78 kg

DRUGS (7)
  1. PLAVIX [Suspect]
     Indication: CORONARY ARTERIAL STENT INSERTION
     Dosage: 1 DF QD - ORAL
     Route: 048
     Dates: start: 20050822, end: 20060101
  2. PLAVIX [Suspect]
     Indication: MYOCARDIAL INFARCTION
     Dosage: 1 DF QD - ORAL
     Route: 048
     Dates: start: 20050822, end: 20060101
  3. ALBUTEROL [Concomitant]
  4. MONTELUKAST SODIUM [Concomitant]
  5. SIMVASTATIN [Concomitant]
  6. DIGOXIN [Concomitant]
  7. RANOLAZINE [Concomitant]

REACTIONS (1)
  - GASTROINTESTINAL HAEMORRHAGE [None]
